FAERS Safety Report 7647608-8 (Version None)
Quarter: 2011Q3

REPORT INFORMATION
  Report Type: 
  Country: None (occurrence: None)
  Receive Date: 20110801
  Receipt Date: 20110720
  Transmission Date: 20111222
  Serious: Yes (Other)
  Sender: FDA-Public Use
  Company Number: GB-PFIZER INC-2011164316

PATIENT
  Age: 59 Year
  Sex: Male

DRUGS (8)
  1. CLOFARABINE [Suspect]
     Indication: ACUTE MYELOID LEUKAEMIA
     Dosage: UNK
     Dates: start: 20100811, end: 20100815
  2. CLOFARABINE [Suspect]
     Indication: MYELODYSPLASTIC SYNDROME
  3. GEMTUZUMAB OZOGAMICIN [Suspect]
     Indication: ACUTE MYELOID LEUKAEMIA
     Dosage: UNK
  4. GEMTUZUMAB OZOGAMICIN [Suspect]
     Indication: MYELODYSPLASTIC SYNDROME
  5. CYTARABINE [Suspect]
     Indication: ACUTE MYELOID LEUKAEMIA
     Dosage: UNK
  6. CYTARABINE [Suspect]
     Indication: MYELODYSPLASTIC SYNDROME
  7. DAUNORUBICIN HCL [Suspect]
     Indication: ACUTE MYELOID LEUKAEMIA
     Dosage: UNK
     Dates: start: 20100811, end: 20100815
  8. DAUNORUBICIN HCL [Suspect]
     Indication: MYELODYSPLASTIC SYNDROME

REACTIONS (3)
  - NECROSIS [None]
  - CATHETER SITE NECROSIS [None]
  - CATHETER SITE CELLULITIS [None]
